FAERS Safety Report 8055379-9 (Version None)
Quarter: 2012Q1

REPORT INFORMATION
  Report Type: 
  Country: None (occurrence: None)
  Receive Date: 20120119
  Receipt Date: 20120105
  Transmission Date: 20120608
  Serious: Yes (Hospitalization)
  Sender: FDA-Public Use
  Company Number: US-MUTUAL PHARMACEUTICAL COMPANY, INC.-CLCY20120007

PATIENT
  Sex: Male
  Weight: 95.34 kg

DRUGS (5)
  1. DILTIAZEM HCL [Concomitant]
     Indication: HYPERTENSION
     Route: 048
  2. METOPROLOL TARTRATE [Concomitant]
     Indication: HYPERTENSION
     Route: 048
  3. COLCRYS [Suspect]
     Indication: GOUT
     Route: 048
     Dates: start: 20110822, end: 20110901
  4. AVODART [Concomitant]
     Indication: PROSTATOMEGALY
     Route: 048
  5. DOXAZOSIN MESYLATE [Concomitant]
     Indication: PRODUCT USED FOR UNKNOWN INDICATION
     Route: 048

REACTIONS (6)
  - BODY TEMPERATURE DECREASED [None]
  - HYPOTENSION [None]
  - VOMITING [None]
  - MUSCULAR WEAKNESS [None]
  - BLOOD ELECTROLYTES DECREASED [None]
  - GAIT DISTURBANCE [None]
